FAERS Safety Report 7793095-9 (Version None)
Quarter: 2011Q4

REPORT INFORMATION
  Report Type: 
  Country: None (occurrence: None)
  Receive Date: 20111003
  Receipt Date: 20110922
  Transmission Date: 20120403
  Serious: Yes (Hospitalization)
  Sender: FDA-Public Use
  Company Number: US-BAYER-201041632NA

PATIENT
  Age: 31 Year
  Sex: Female
  Weight: 82 kg

DRUGS (8)
  1. YAZ [Suspect]
     Indication: PRODUCT USED FOR UNKNOWN INDICATION
     Dosage: UNK
     Route: 048
     Dates: start: 20090722, end: 20100225
  2. AMBIEN [Concomitant]
     Indication: SLEEP DISORDER
  3. ZANTAC [Concomitant]
     Indication: DYSPEPSIA
  4. HYDROCODONE [Concomitant]
     Indication: INTERVERTEBRAL DISC PROTRUSION
     Dosage: UNK
     Dates: start: 20040101
  5. LISINOPRIL [Concomitant]
     Indication: HYPERTENSION
     Dosage: UNK
     Dates: start: 20091001
  6. YAZ [Suspect]
     Indication: MENSTRUAL CYCLE MANAGEMENT
  7. PROTONIX [Concomitant]
     Indication: GASTROOESOPHAGEAL REFLUX DISEASE
     Dosage: UNK
  8. PERCOCET [Concomitant]
     Indication: INTERVERTEBRAL DISC PROTRUSION
     Dosage: UNK
     Dates: start: 20040101

REACTIONS (2)
  - STRESS [None]
  - DEEP VEIN THROMBOSIS [None]
